FAERS Safety Report 5105468-3 (Version None)
Quarter: 2006Q3

REPORT INFORMATION
  Report Type: 
  Country: None (occurrence: None)
  Receive Date: 20060915
  Receipt Date: 20060728
  Transmission Date: 20061208
  Serious: No
  Sender: FDA-Public Use
  Company Number: US-GLAXOSMITHKLINE-A0614598A

PATIENT
  Sex: Male

DRUGS (1)
  1. AVANDARYL [Suspect]
     Indication: BLOOD GLUCOSE
     Route: 048
     Dates: start: 20060201

REACTIONS (1)
  - BLOOD GLUCOSE INCREASED [None]
